FAERS Safety Report 11881802 (Version 1)
Quarter: 2015Q4

REPORT INFORMATION
  Report Type: Spontaneous
  Country: US (occurrence: None)
  Receive Date: 20151230
  Receipt Date: 20151230
  Transmission Date: 20160305
  Serious: No
  Sender: FDA-Public Use
  Company Number: None

PATIENT
  Age: 67 Year
  Sex: Male

DRUGS (1)
  1. HUMIRA [Suspect]
     Active Substance: ADALIMUMAB
     Indication: POLYARTHRITIS
     Route: 058
     Dates: start: 20151013

REACTIONS (5)
  - Rash [None]
  - Abdominal distension [None]
  - Weight increased [None]
  - Rash pruritic [None]
  - Arthritis [None]

NARRATIVE: CASE EVENT DATE: 20151228
